FAERS Safety Report 23350634 (Version 1)
Quarter: 2023Q4

REPORT INFORMATION
  Report Type: Spontaneous
  Country: FR (occurrence: FR)
  Receive Date: 20231229
  Receipt Date: 20231229
  Transmission Date: 20240109
  Serious: Yes (Other)
  Sender: FDA-Public Use
  Company Number: None

PATIENT
  Age: 33 Year
  Sex: Male

DRUGS (2)
  1. GABAPENTIN [Suspect]
     Active Substance: GABAPENTIN
     Indication: Crohn^s disease
     Dosage: 100 MILLIGRAM
     Route: 048
     Dates: start: 20230901
  2. PONESIMOD [Suspect]
     Active Substance: PONESIMOD
     Indication: Demyelination
     Dosage: 20 MILLIGRAM
     Route: 048
     Dates: start: 20230901

REACTIONS (1)
  - Hypogammaglobulinaemia [Not Recovered/Not Resolved]

NARRATIVE: CASE EVENT DATE: 20231102
